FAERS Safety Report 9684602 (Version 1)
Quarter: 2013Q4

REPORT INFORMATION
  Report Type: Spontaneous
  Country: US (occurrence: None)
  Receive Date: 20131108
  Receipt Date: 20131108
  Transmission Date: 20140711
  Serious: Yes (Death, Hospitalization)
  Sender: FDA-Public Use
  Company Number: SP07196

PATIENT
  Age: 92 Year
  Sex: Female

DRUGS (3)
  1. XIFAXAN [Suspect]
     Indication: DIARRHOEA
     Dosage: (2 IN 1 D), ORAL
     Route: 048
     Dates: start: 200911, end: 200911
  2. XIFAXAN [Suspect]
     Indication: PYREXIA
     Dosage: (2 IN 1 D), ORAL
     Route: 048
     Dates: start: 200911, end: 200911
  3. XIFAXAN [Suspect]
     Dosage: (2 IN 1 D), ORAL
     Route: 048
     Dates: start: 200911, end: 200911

REACTIONS (4)
  - Diarrhoea [None]
  - Abdominal pain [None]
  - Blood creatinine increased [None]
  - Clostridium difficile colitis [None]
